FAERS Safety Report 16544625 (Version 1)
Quarter: 2019Q3

REPORT INFORMATION
  Report Type: Spontaneous
  Country: US (occurrence: US)
  Receive Date: 20190708
  Receipt Date: 20190708
  Transmission Date: 20191004
  Serious: Yes (Other)
  Sender: FDA-Public Use
  Company Number: None

PATIENT
  Age: 57 Year
  Sex: Female
  Weight: 82.35 kg

DRUGS (9)
  1. WELLBUTRIN [Concomitant]
     Active Substance: BUPROPION HYDROCHLORIDE
  2. MESALAMINE. [Suspect]
     Active Substance: MESALAMINE
     Indication: COLITIS
     Dosage: ?          QUANTITY:1 TABLET(S);?
     Route: 048
     Dates: start: 20190510, end: 20190511
  3. HYDROTHORACLORIZIDE [Concomitant]
  4. VITAMIN D [Concomitant]
     Active Substance: VITAMIN D NOS
  5. MULTIVITAMIN [Concomitant]
     Active Substance: VITAMINS
  6. KLOR-CON [Concomitant]
     Active Substance: POTASSIUM CHLORIDE
  7. VITAMIN B12 [Concomitant]
     Active Substance: CYANOCOBALAMIN
  8. SIMVASTATIN. [Concomitant]
     Active Substance: SIMVASTATIN
  9. CALCIUM [Concomitant]
     Active Substance: CALCIUM

REACTIONS (3)
  - Chest pain [None]
  - Palpitations [None]
  - Burning sensation [None]

NARRATIVE: CASE EVENT DATE: 20190510
